FAERS Safety Report 19386107 (Version 1)
Quarter: 2021Q2

REPORT INFORMATION
  Report Type: Spontaneous
  Country: NL (occurrence: NL)
  Receive Date: 20210608
  Receipt Date: 20210608
  Transmission Date: 20210717
  Serious: Yes (Hospitalization)
  Sender: FDA-Public Use
  Company Number: NL-TEVA-2021-NL-1919432

PATIENT
  Age: 73 Year
  Sex: Female
  Weight: 60 kg

DRUGS (6)
  1. CARBASALAATCALCIUM BRUISTABLET 100MG / BRAND NAME NOT SPECIFIED [Concomitant]
     Dosage: 100 MG, THERAPY START AND END DATE: ASKU
  2. PANTOPRAZOL TABLET MSR 40MG / BRAND NAME NOT SPECIFIED [Concomitant]
     Active Substance: PANTOPRAZOLE
     Dosage: 40 MG, THERAPY START AND END DATE: ASKU
  3. AMLODIPINE TABLET   5MG / BRAND NAME NOT SPECIFIED [Concomitant]
     Active Substance: AMLODIPINE BESYLATE
     Dosage: 5 MG, THERAPY START AND END DATE: ASKU
  4. ISOSORBIDEDINITRAAT TABLET 30MG / BRAND NAME NOT SPECIFIED [Concomitant]
     Dosage: 30 MG, THERAPY START AND END DATE: ASKU
  5. HYDROCHLOORTHIAZIDE TABLET 25MG / BRAND NAME NOT SPECIFIED [Suspect]
     Active Substance: HYDROCHLOROTHIAZIDE
     Indication: HYPERTENSION
     Dosage: 25 MILLIGRAM DAILY; (TAKE IN THE MORNING)
     Route: 065
     Dates: start: 201601, end: 20210518
  6. LISINOPRIL TABLET 10MG / BRAND NAME NOT SPECIFIED [Concomitant]
     Active Substance: LISINOPRIL
     Dosage: 10 MG, THERAPY START AND END DATE: ASKU

REACTIONS (3)
  - Hyponatraemia [Recovering/Resolving]
  - Nausea [Recovered/Resolved]
  - Abdominal pain [Recovered/Resolved]

NARRATIVE: CASE EVENT DATE: 20210510
